FAERS Safety Report 5813438-2 (Version None)
Quarter: 2008Q3

REPORT INFORMATION
  Report Type: 
  Country: None (occurrence: None)
  Receive Date: 20080716
  Receipt Date: 20080716
  Transmission Date: 20090109
  Serious: No
  Sender: FDA-Public Use
  Company Number: None

PATIENT
  Sex: Male
  Weight: 111.1 kg

DRUGS (3)
  1. CASODEX [Suspect]
     Dosage: 750 MG
  2. ZOLADEX [Suspect]
     Dosage: 3.6 MG
  3. LEXAPRO [Concomitant]

REACTIONS (6)
  - DEPRESSION [None]
  - GUN SHOT WOUND [None]
  - INTENTIONAL SELF-INJURY [None]
  - METASTASES TO BONE [None]
  - METASTASES TO SOFT TISSUE [None]
  - PAIN [None]
